FAERS Safety Report 18621070 (Version 1)
Quarter: 2020Q4

REPORT INFORMATION
  Report Type: Spontaneous
  Country: FR (occurrence: FR)
  Receive Date: 20201215
  Receipt Date: 20201215
  Transmission Date: 20210114
  Serious: Yes (Other)
  Sender: FDA-Public Use
  Company Number: NVSC2020FR328236

PATIENT
  Age: 60 Year
  Sex: Male

DRUGS (7)
  1. BISOPROLOL [Concomitant]
     Active Substance: BISOPROLOL
     Indication: PRODUCT USED FOR UNKNOWN INDICATION
     Dosage: UNK
     Route: 065
  2. DEPAKINE CRONO [Concomitant]
     Active Substance: VALPROIC ACID
     Indication: PRODUCT USED FOR UNKNOWN INDICATION
     Dosage: UNK
     Route: 065
  3. UROREC [Suspect]
     Active Substance: SILODOSIN
     Indication: PROSTATIC DISORDER
     Dosage: UNK
     Route: 065
     Dates: start: 2020
  4. URBANYL [Concomitant]
     Active Substance: CLOBAZAM
     Indication: PRODUCT USED FOR UNKNOWN INDICATION
     Dosage: UNK
     Route: 065
  5. PERMIXON [Suspect]
     Active Substance: HERBALS\SAW PALMETTO
     Indication: PROSTATIC DISORDER
     Dosage: UNK
     Route: 065
     Dates: start: 2020
  6. XARELTO [Suspect]
     Active Substance: RIVAROXABAN
     Indication: PRODUCT USED FOR UNKNOWN INDICATION
     Dosage: UNK
     Route: 065
  7. DESLORATADINE. [Suspect]
     Active Substance: DESLORATADINE
     Indication: PROSTATIC DISORDER
     Dosage: UNK
     Route: 065
     Dates: start: 2020

REACTIONS (3)
  - Prostatic disorder [Unknown]
  - Headache [Unknown]
  - Syncope [Unknown]
